FAERS Safety Report 24015625 (Version 1)
Quarter: 2024Q2

REPORT INFORMATION
  Report Type: Spontaneous
  Country: BR (occurrence: BR)
  Receive Date: 20240626
  Receipt Date: 20240626
  Transmission Date: 20240716
  Serious: Yes (Death)
  Sender: FDA-Public Use
  Company Number: BR-GRUNENTHAL-2024-121971

PATIENT
  Age: 78 Year
  Sex: Male

DRUGS (4)
  1. LIDOCAINE [Suspect]
     Active Substance: LIDOCAINE
     Indication: Pain
     Dosage: UNK
     Route: 061
     Dates: start: 20240612, end: 20240616
  2. LIDOCAINE [Suspect]
     Active Substance: LIDOCAINE
     Indication: Post herpetic neuralgia
     Dosage: UNK
     Route: 061
  3. LIDOCAINE [Suspect]
     Active Substance: LIDOCAINE
     Indication: Fracture pain
  4. DIPYRONE [Concomitant]
     Active Substance: DIPYRONE
     Indication: Herpes zoster
     Dosage: UNK

REACTIONS (15)
  - Respiratory tract infection [Fatal]
  - Product quality issue [Unknown]
  - Nausea [Unknown]
  - Vomiting [Unknown]
  - Tremor [Unknown]
  - Somnolence [Unknown]
  - Confusional state [Unknown]
  - Feeding disorder [Unknown]
  - Dry eye [Unknown]
  - Application site dermatitis [Recovering/Resolving]
  - Dermatitis [Recovering/Resolving]
  - Constipation [Unknown]
  - Application site erythema [Unknown]
  - Application site warmth [Unknown]
  - Application site pruritus [Unknown]
